FAERS Safety Report 11605105 (Version 5)
Quarter: 2016Q1

REPORT INFORMATION
  Report Type: Spontaneous
  Country: US (occurrence: US)
  Receive Date: 20151007
  Receipt Date: 20160304
  Transmission Date: 20160525
  Serious: No
  Sender: FDA-Public Use
  Company Number: US-PFIZER INC-2015331036

PATIENT
  Age: 63 Year
  Sex: Female
  Weight: 56 kg

DRUGS (22)
  1. MEPERIDINE HCL [Concomitant]
     Active Substance: MEPERIDINE HYDROCHLORIDE
     Dosage: 50 MG/ 5 ML, TAKE AS DIRECTED
     Route: 048
     Dates: start: 20081106
  2. PREDNISONE. [Concomitant]
     Active Substance: PREDNISONE
     Dosage: 60 MG DAILY FOR 3 DAYS, THEN 40 MG DAILY FOR 3 DAYS
     Route: 048
     Dates: start: 20150401, end: 20150421
  3. VITAMIN D [Concomitant]
     Active Substance: CHOLECALCIFEROL
     Dosage: 2.5 DF, DAILY
     Route: 048
     Dates: start: 20140827
  4. DIFLUCAN [Interacting]
     Active Substance: FLUCONAZOLE
     Dosage: 150 MG, 1X/DAY
     Route: 048
     Dates: start: 20100108, end: 20100610
  5. PANTOPRAZOLE SODIUM. [Concomitant]
     Active Substance: PANTOPRAZOLE SODIUM
     Indication: DYSPEPSIA
     Dosage: 40 MG, 2X/DAY
     Route: 048
     Dates: start: 20150416
  6. ZONALON [Concomitant]
     Active Substance: DOXEPIN HYDROCHLORIDE
     Dosage: 1 G, 2X/DAY
     Dates: start: 20130607
  7. CLOTRIMAZOLE. [Concomitant]
     Active Substance: CLOTRIMAZOLE
     Dosage: 10 MG, 3X/DAY (AS DIRECTED)
     Route: 048
     Dates: start: 20150424, end: 20150910
  8. ZOFRAN [Concomitant]
     Active Substance: ONDANSETRON HYDROCHLORIDE
     Indication: NAUSEA
     Dosage: 4 MG, 4X/DAY AS NEEDED (1 DF EVERY 6 HOURS)
     Route: 048
     Dates: start: 20141031, end: 20150806
  9. PREDNISONE. [Concomitant]
     Active Substance: PREDNISONE
     Dosage: 30 MG DAILY FOR 5 DAYS, THEN 20 MG DAILY FOR 5 DAYS
     Route: 048
     Dates: start: 20150219, end: 20150401
  10. VENTOLIN HFA [Concomitant]
     Active Substance: ALBUTEROL SULFATE
     Indication: COUGH
     Dosage: 2 PUFFS EVERY 4 HOURS AS NEEDED
     Dates: start: 20150219, end: 20150806
  11. DIFLUCAN [Suspect]
     Active Substance: FLUCONAZOLE
     Indication: OESOPHAGEAL CANDIDIASIS
     Dosage: 200 MG, DAILY
     Route: 048
     Dates: start: 20150914, end: 20151029
  12. DIFLUCAN [Interacting]
     Active Substance: FLUCONAZOLE
     Dosage: 200 MG, DAILY
     Route: 048
     Dates: start: 20150424, end: 20150424
  13. DILANTIN [Interacting]
     Active Substance: PHENYTOIN
     Indication: SEIZURE
     Dosage: 300 MG, 1X/DAY (EVERY NIGHT AT BEDTIME)
     Route: 048
     Dates: start: 20091214
  14. EVISTA [Concomitant]
     Active Substance: RALOXIFENE HYDROCHLORIDE
     Indication: OSTEOPENIA
     Dosage: 60 MG, 1X/DAY
     Route: 048
     Dates: start: 20070328
  15. DIFLUCAN [Interacting]
     Active Substance: FLUCONAZOLE
     Dosage: 100 MG, DAILY
     Dates: start: 20150425, end: 20150505
  16. DIAZEPAM. [Concomitant]
     Active Substance: DIAZEPAM
     Dosage: AS NEEDED (10 MG, TAKE 1/2 TO 1 TABLET AT BEDTIME)
     Route: 048
     Dates: start: 20140109
  17. IPRATROPIUM-ALBUTEROL [Concomitant]
     Active Substance: ALBUTEROL\IPRATROPIUM
     Dosage: AS NEEDED (1 DOSE IN NEBULIZER EVERY 4 HOURS)
     Dates: start: 20150320, end: 20150806
  18. DIFLUCAN [Interacting]
     Active Substance: FLUCONAZOLE
     Dosage: 150 MG, 1X/DAY
     Route: 048
     Dates: start: 20130318, end: 20130318
  19. AMITRIPTYLINE [Concomitant]
     Active Substance: AMITRIPTYLINE
     Indication: ANGIOEDEMA
     Dosage: 75 MG, 1X/DAY (EVERY NIGHT AT BEDTIME)
     Route: 048
     Dates: start: 20130822
  20. VAGIFEM [Concomitant]
     Active Substance: ESTRADIOL
     Dosage: 1 DF BEDTIME DAILY FOR 2 WEEKS THEN TWICE WEEKLY
     Route: 067
     Dates: start: 20101216, end: 20150806
  21. VENTOLIN HFA [Concomitant]
     Active Substance: ALBUTEROL SULFATE
     Indication: WHEEZING
  22. VOLTAREN [Concomitant]
     Active Substance: DICLOFENAC SODIUM
     Dosage: 2 G, 2X/DAY
     Route: 062
     Dates: start: 20150727, end: 20150825

REACTIONS (14)
  - Dry mouth [Unknown]
  - Decreased appetite [Unknown]
  - Weight decreased [Unknown]
  - Dysgeusia [Not Recovered/Not Resolved]
  - Breath odour [Not Recovered/Not Resolved]
  - Dizziness [Recovered/Resolved]
  - Thirst [Not Recovered/Not Resolved]
  - Chapped lips [Not Recovered/Not Resolved]
  - Oral mucosal blistering [Unknown]
  - Aptyalism [Not Recovered/Not Resolved]
  - Dysgeusia [Unknown]
  - Drug interaction [Recovering/Resolving]
  - Drug level increased [Recovering/Resolving]
  - Treatment failure [Unknown]

NARRATIVE: CASE EVENT DATE: 2015
